FAERS Safety Report 4382393-7 (Version None)
Quarter: 2004Q2

REPORT INFORMATION
  Report Type: 
  Country: None (occurrence: None)
  Receive Date: 20040621
  Receipt Date: 20040621
  Transmission Date: 20050107
  Serious: Yes (Other)
  Sender: FDA-Public Use
  Company Number: None

PATIENT
  Age: 2 Day
  Sex: Male
  Weight: 2.7216 kg

DRUGS (1)
  1. PROZAC [Suspect]
     Indication: DEPRESSION
     Dosage: DAILY ORAL
     Route: 048

REACTIONS (5)
  - AGITATION NEONATAL [None]
  - DIARRHOEA NEONATAL [None]
  - IRRITABILITY [None]
  - NEONATAL DISORDER [None]
  - SCRATCH [None]
